FAERS Safety Report 9855458 (Version 1)
Quarter: 2014Q1

REPORT INFORMATION
  Report Type: Spontaneous
  Country: US (occurrence: None)
  Receive Date: 20140128
  Receipt Date: 20140128
  Transmission Date: 20141002
  Serious: Yes (Death)
  Sender: FDA-Public Use
  Company Number: 2014AP000478

PATIENT
  Age: 50 Year
  Sex: Female

DRUGS (7)
  1. CITALOPRAM HYDROBROMIDE [Suspect]
     Route: 048
  2. TRAMADOL [Suspect]
     Route: 048
  3. ACETAMINOPHEN W/HYDROCODONE [Suspect]
     Route: 048
  4. LISINOPRIL TABLETS [Suspect]
     Route: 048
  5. PREGABALIN [Suspect]
     Route: 048
  6. DICLOFENAC [Suspect]
     Route: 048
  7. CONJUGATED ESTROGENS [Suspect]
     Route: 048

REACTIONS (2)
  - Cardio-respiratory arrest [None]
  - Completed suicide [None]
